FAERS Safety Report 5296516-9 (Version None)
Quarter: 2007Q2

REPORT INFORMATION
  Report Type: 
  Country: None (occurrence: None)
  Receive Date: 20070413
  Receipt Date: 20070403
  Transmission Date: 20071010
  Serious: Yes (Death)
  Sender: FDA-Public Use
  Company Number: US-ROCHE-490982

PATIENT
  Age: 53 Year
  Sex: Male

DRUGS (1)
  1. NAPROSYN [Suspect]
     Indication: FIBROMYALGIA
     Route: 065

REACTIONS (1)
  - MYOCARDIAL INFARCTION [None]
